FAERS Safety Report 9666212 (Version 3)
Quarter: 2014Q1

REPORT INFORMATION
  Report Type: Spontaneous
  Country: US (occurrence: US)
  Receive Date: 20131104
  Receipt Date: 20140106
  Transmission Date: 20141002
  Serious: Yes (Other)
  Sender: FDA-Public Use
  Company Number: US-BIOGENIDEC-2013BI102336

PATIENT
  Age: 53 Year
  Sex: Female
  Weight: 68 kg

DRUGS (20)
  1. TECFIDERA [Suspect]
     Indication: MULTIPLE SCLEROSIS
     Route: 048
     Dates: start: 20131016, end: 20131016
  2. BACLOFEN [Concomitant]
  3. FOLIC ACID [Concomitant]
  4. ESTRACE [Concomitant]
  5. VITAMIN B12 [Concomitant]
  6. VITAMIN D [Concomitant]
  7. PRILOSEC [Concomitant]
  8. VITAMIN C [Concomitant]
  9. CALCIUM + VIT D [Concomitant]
  10. LOVAZA [Concomitant]
  11. VISTARIL [Concomitant]
  12. IRON [Concomitant]
  13. MACRODANTIN [Concomitant]
  14. ARICEPT [Concomitant]
  15. CAPTOPRIL [Concomitant]
  16. XANAX [Concomitant]
  17. FENTANYL [Concomitant]
  18. TRAZODONE [Concomitant]
  19. AMBIEN [Concomitant]
  20. REQUIP [Concomitant]

REACTIONS (4)
  - Flushing [Recovered/Resolved]
  - Urticaria [Recovered/Resolved]
  - Erythema [Recovered/Resolved]
  - Throat tightness [Recovered/Resolved]
